FAERS Safety Report 8204974-2 (Version None)
Quarter: 2012Q1

REPORT INFORMATION
  Report Type: 
  Country: None (occurrence: None)
  Receive Date: 20120313
  Receipt Date: 20120302
  Transmission Date: 20120608
  Serious: No
  Sender: FDA-Public Use
  Company Number: US-BAYER-2012-021549

PATIENT
  Age: 68 Year
  Sex: Female
  Weight: 117 kg

DRUGS (2)
  1. VITAMIN D [Concomitant]
  2. ALEVE (CAPLET) [Suspect]
     Indication: ARTHRITIS
     Dosage: 1 U, UNK
     Route: 048
     Dates: start: 20120222

REACTIONS (1)
  - PAIN [None]
